FAERS Safety Report 15476789 (Version 4)
Quarter: 2019Q2

REPORT INFORMATION
  Report Type: Report from Study
  Country: None (occurrence: CA)
  Receive Date: 20181009
  Receipt Date: 20190404
  Transmission Date: 20190711
  Serious: Yes (Other)
  Sender: FDA-Public Use
  Company Number: CA-ABBVIE-18K-028-2511762-00

PATIENT
  Age: 56 Year
  Sex: Female

DRUGS (2)
  1. HUMIRA [Suspect]
     Active Substance: ADALIMUMAB
     Indication: UVEITIS
     Route: 058
     Dates: start: 20160407, end: 2018
  2. HUMIRA [Suspect]
     Active Substance: ADALIMUMAB
     Route: 058
     Dates: start: 2018

REACTIONS (10)
  - Expired device used [Unknown]
  - Inflammation [Unknown]
  - Wrong technique in product usage process [Unknown]
  - Skin irritation [Recovering/Resolving]
  - Pain in extremity [Recovering/Resolving]
  - Pruritus [Recovering/Resolving]
  - Erythema [Recovered/Resolved]
  - Sight disability [Not Recovered/Not Resolved]
  - Peripheral swelling [Recovering/Resolving]
  - Injection site infection [Recovered/Resolved]

NARRATIVE: CASE EVENT DATE: 2018
